FAERS Safety Report 17518407 (Version 1)
Quarter: 2020Q1

REPORT INFORMATION
  Report Type: Spontaneous
  Country: US (occurrence: US)
  Receive Date: 20200228
  Receipt Date: 20200228
  Transmission Date: 20200409
  Serious: Yes (Hospitalization)
  Sender: FDA-Public Use
  Company Number: None

PATIENT
  Sex: Female

DRUGS (15)
  1. METOPROL TAR [Concomitant]
  2. NOVOLOG [Concomitant]
     Active Substance: INSULIN ASPART
  3. MYCOPHENOLATE 250MG [Suspect]
     Active Substance: MYCOPHENOLIC ACID
     Indication: RENAL TRANSPLANT
     Route: 048
     Dates: start: 20140311
  4. TACROLIMUS  0.5MG [Suspect]
     Active Substance: TACROLIMUS
     Indication: TRANSPLANT
     Route: 048
     Dates: start: 20141115
  5. LANTUS [Concomitant]
     Active Substance: INSULIN GLARGINE
  6. LISINOPRIL. [Concomitant]
     Active Substance: LISINOPRIL
  7. PRILOSEC [Concomitant]
     Active Substance: OMEPRAZOLE MAGNESIUM
  8. AMIODARONE [Concomitant]
     Active Substance: AMIODARONE
  9. BUMETANDINE [Concomitant]
  10. LOPRESSOR [Concomitant]
     Active Substance: METOPROLOL TARTRATE
  11. XARELTO [Concomitant]
     Active Substance: RIVAROXABAN
  12. POT CL [Concomitant]
  13. PREDNISONE. [Concomitant]
     Active Substance: PREDNISONE
  14. ATORVASTATIN [Concomitant]
     Active Substance: ATORVASTATIN
  15. FISH OIL [Concomitant]
     Active Substance: FISH OIL

REACTIONS (1)
  - Ill-defined disorder [None]
